FAERS Safety Report 5972066-9 (Version None)
Quarter: 2008Q4

REPORT INFORMATION
  Report Type: 
  Country: None (occurrence: None)
  Receive Date: 20081201
  Receipt Date: 20080331
  Transmission Date: 20090506
  Serious: No
  Sender: FDA-Public Use
  Company Number: US-TEVA-169475USA

PATIENT
  Sex: Female

DRUGS (12)
  1. SALBUTAMOL SULFATE INHALATION, 0.09 MG [Suspect]
     Indication: ASTHMA
     Dosage: 2 PUFFS QID AND AS NEEDED
     Route: 055
  2. POTASSIUM CHLORIDE [Concomitant]
  3. BENAZEPRIL HYDROCHLORIDE [Concomitant]
  4. FUROSEMIDE [Concomitant]
  5. DULOXETINE HYDROCHLORIDE [Concomitant]
  6. GLIPIZIDE [Concomitant]
  7. GEMFIBROZIL [Concomitant]
  8. JANUVIA [Concomitant]
  9. LEVOTHYROXINE SODIUM [Concomitant]
  10. BREVA [Concomitant]
  11. PRAVASTATIN SODIUM [Concomitant]
  12. VERAPAMIL [Concomitant]

REACTIONS (2)
  - ASTHMA [None]
  - DRUG INEFFECTIVE [None]
